FAERS Safety Report 8912000 (Version 3)
Quarter: 2013Q2

REPORT INFORMATION
  Report Type: Report from Study
  Country: JP (occurrence: JP)
  Receive Date: 20121115
  Receipt Date: 20130523
  Transmission Date: 20140414
  Serious: Yes (Other)
  Sender: FDA-Public Use
  Company Number: JP-009507513-1211JPN004409

PATIENT
  Age: 68 Year
  Sex: Female
  Weight: 53 kg

DRUGS (13)
  1. PEGINTRON [Suspect]
     Indication: CHRONIC HEPATITIS C
     Dosage: 1.5 MICROGRAM PER KILOGRAM, QW
     Route: 058
     Dates: start: 20120719
  2. REBETOL [Suspect]
     Indication: CHRONIC HEPATITIS C
     Dosage: 400 MG, QD
     Route: 048
     Dates: start: 20120719, end: 20120802
  3. REBETOL [Suspect]
     Dosage: 200 MG, QD
     Route: 048
     Dates: start: 20120803, end: 20120926
  4. REBETOL [Suspect]
     Dosage: 200 MG, QD
     Route: 048
     Dates: start: 20121107
  5. REBETOL [Suspect]
     Dosage: 400 MG, QD
     Route: 048
     Dates: start: 20121205
  6. TELAVIC [Suspect]
     Indication: CHRONIC HEPATITIS C
     Dosage: 1500 MG, QD
     Route: 048
     Dates: start: 20120719, end: 20120926
  7. ZYLORIC [Suspect]
     Indication: ADVERSE EVENT
     Dosage: 200 MG, QD, FORMULATION: POR
     Route: 048
     Dates: start: 20120723, end: 20121010
  8. ZYLORIC [Suspect]
     Indication: HYPERURICAEMIA
  9. TAKEPRON [Concomitant]
     Indication: GASTRITIS EROSIVE
     Dosage: 15 MG, QD, FORMULATION: POR
     Route: 048
  10. MAGLAX [Concomitant]
     Indication: CONSTIPATION
     Dosage: 330 MG/DAY, PRN
     Route: 048
  11. LENDORMIN [Concomitant]
     Indication: INSOMNIA
     Dosage: 0.25 MG/DAY, PRN
     Route: 048
  12. LOXONIN [Concomitant]
     Indication: PYREXIA
     Dosage: 60 MG/ DAY, PRN,  FORMULATION: POR
     Route: 048
  13. SELBEX [Concomitant]
     Indication: PROPHYLAXIS
     Dosage: 50 MG/DAY, PRN, CONCURRENTLY USE AT THE TIME OF FEVER
     Route: 048

REACTIONS (2)
  - Anaemia [Not Recovered/Not Resolved]
  - Anaemia [Not Recovered/Not Resolved]
